FAERS Safety Report 8843438 (Version 1)
Quarter: 2012Q4

REPORT INFORMATION
  Report Type: 
  Country: US (occurrence: US)
  Receive Date: 20121016
  Receipt Date: 20121016
  Transmission Date: 20130627
  Serious: Yes (Death, Other)
  Sender: FDA-Public Use
  Company Number: US-MERCK-1210USA001873

PATIENT

DRUGS (2)
  1. JANUVIA [Suspect]
     Indication: TYPE 2 DIABETES MELLITUS
     Dosage: UNK
     Route: 048
     Dates: start: 20061121, end: 200705
  2. BYETTA [Suspect]
     Dosage: UNK
     Dates: start: 20070827, end: 201007

REACTIONS (1)
  - Pancreatic carcinoma [Fatal]
